FAERS Safety Report 5474232-8 (Version None)
Quarter: 2007Q3

REPORT INFORMATION
  Report Type: 
  Country: None (occurrence: None)
  Receive Date: 20070928
  Receipt Date: 20070928
  Transmission Date: 20080115
  Serious: No
  Sender: FDA-Public Use
  Company Number: None

PATIENT
  Age: 39 Year
  Sex: Female

DRUGS (9)
  1. BETASERON [Suspect]
     Dates: start: 20031209, end: 20050422
  2. NEURONTIN [Concomitant]
  3. PREVACID [Concomitant]
  4. WELLBUTRIN XL [Concomitant]
  5. DETROL [Concomitant]
  6. ENABLEX [Concomitant]
  7. LORAZEPAM [Concomitant]
  8. NITROFURANTOIN [Concomitant]
  9. MOTRIN [Concomitant]

REACTIONS (10)
  - ALANINE AMINOTRANSFERASE INCREASED [None]
  - ASPARTATE AMINOTRANSFERASE INCREASED [None]
  - BLOOD ALKALINE PHOSPHATASE INCREASED [None]
  - DEPRESSION [None]
  - FATIGUE [None]
  - GAIT DISTURBANCE [None]
  - HEPATOTOXICITY [None]
  - LIVER INJURY [None]
  - PROGRESSIVE RELAPSING MULTIPLE SCLEROSIS [None]
  - RASH PAPULAR [None]
